FAERS Safety Report 16893562 (Version 1)
Quarter: 2019Q4

REPORT INFORMATION
  Report Type: Report from Study
  Country: GB (occurrence: GB)
  Receive Date: 20191008
  Receipt Date: 20191008
  Transmission Date: 20200122
  Serious: Yes (Hospitalization)
  Sender: FDA-Public Use
  Company Number: GB-TAKEDA-2019TUS055114

PATIENT
  Sex: Female

DRUGS (1)
  1. VEDOLIZUMAB [Suspect]
     Active Substance: VEDOLIZUMAB
     Indication: COLITIS ULCERATIVE
     Dosage: UNK
     Route: 042
     Dates: start: 20190312

REACTIONS (5)
  - Liver disorder [Unknown]
  - Tinnitus [Unknown]
  - Anaemia [Unknown]
  - Lower respiratory tract infection [Recovered/Resolved]
  - Otitis media [Unknown]
